FAERS Safety Report 24805961 (Version 1)
Quarter: 2025Q1

REPORT INFORMATION
  Report Type: Spontaneous
  Country: IT (occurrence: IT)
  Receive Date: 20250103
  Receipt Date: 20250103
  Transmission Date: 20250408
  Serious: Yes (Other)
  Sender: PFIZER
  Company Number: None

PATIENT
  Age: 27 Year
  Sex: Male

DRUGS (2)
  1. XELJANZ [Suspect]
     Active Substance: TOFACITINIB CITRATE
     Indication: Colitis ulcerative
     Dosage: 10 MG (2 TABLETS), 1X/DAY
     Route: 048
     Dates: start: 20221202, end: 20240223
  2. MESALAMINE [Concomitant]
     Active Substance: MESALAMINE

REACTIONS (4)
  - Haematochezia [Recovered/Resolved]
  - Frequent bowel movements [Recovered/Resolved]
  - Diarrhoea [Recovered/Resolved]
  - Loss of therapeutic response [Recovered/Resolved]

NARRATIVE: CASE EVENT DATE: 20240101
